FAERS Safety Report 23399804 (Version 1)
Quarter: 2024Q1

REPORT INFORMATION
  Report Type: Spontaneous
  Country: RO (occurrence: RO)
  Receive Date: 20240114
  Receipt Date: 20240114
  Transmission Date: 20240410
  Serious: Yes (Other)
  Sender: FDA-Public Use
  Company Number: RO-009507513-2312ROU010439

PATIENT
  Age: 56 Year
  Sex: Male

DRUGS (3)
  1. PEMETREXED [Suspect]
     Active Substance: PEMETREXED
     Indication: Adenocarcinoma
     Dosage: UNK (8 COURSES)
     Route: 065
     Dates: start: 2023
  2. PEMBROLIZUMAB [Suspect]
     Active Substance: PEMBROLIZUMAB
     Indication: Adenocarcinoma
     Dosage: UNK (8 COURSES)
     Route: 065
     Dates: start: 2023
  3. CARBOPLATIN [Suspect]
     Active Substance: CARBOPLATIN
     Indication: Adenocarcinoma
     Dosage: UNK( 8 COURSES)
     Route: 065
     Dates: start: 2023

REACTIONS (6)
  - Type 1 diabetes mellitus [Unknown]
  - Diabetes insipidus [Unknown]
  - Malignant neoplasm progression [Unknown]
  - Chest pain [Unknown]
  - Weight decreased [Unknown]
  - Laboratory test abnormal [Unknown]

NARRATIVE: CASE EVENT DATE: 20230101
